FAERS Safety Report 5445900-9 (Version None)
Quarter: 2007Q3

REPORT INFORMATION
  Report Type: 
  Country: None (occurrence: None)
  Receive Date: 20070907
  Receipt Date: 20070830
  Transmission Date: 20080115
  Serious: Yes (Other)
  Sender: FDA-Public Use
  Company Number: PHNR2007AU01822

PATIENT
  Age: 32 Year
  Sex: Female

DRUGS (1)
  1. ESTALIS SEQUI [Suspect]
     Dosage: 50/140UG
     Route: 062

REACTIONS (1)
  - COELIAC DISEASE [None]
